FAERS Safety Report 10971748 (Version 1)
Quarter: 2015Q1

REPORT INFORMATION
  Report Type: Report from Study
  Country: AU (occurrence: AU)
  Receive Date: 20150331
  Receipt Date: 20150331
  Transmission Date: 20150721
  Serious: Yes (Other)
  Sender: FDA-Public Use
  Company Number: AU-BAYER-2015-060413

PATIENT
  Sex: Male

DRUGS (1)
  1. INTERFERON BETA - 1B [Suspect]
     Active Substance: INTERFERON BETA-1B
     Dosage: UNK
     Dates: start: 20070709, end: 201412

REACTIONS (1)
  - Multiple sclerosis relapse [Unknown]

NARRATIVE: CASE EVENT DATE: 20141201
